FAERS Safety Report 8298279-1 (Version None)
Quarter: 2012Q2

REPORT INFORMATION
  Report Type: 
  Country: None (occurrence: None)
  Receive Date: 20120419
  Receipt Date: 20120228
  Transmission Date: 20120825
  Serious: No
  Sender: FDA-Public Use
  Company Number: US-BRISTOL-MYERS SQUIBB COMPANY-16358343

PATIENT
  Age: 57 Year
  Sex: Male

DRUGS (1)
  1. YERVOY [Suspect]
     Indication: METASTATIC MALIGNANT MELANOMA
     Dosage: 3RD DOSE 3 WEEK * 4 22G 3/4^ NEEDLE ALSO ON 29DEC, 3RD DOSE 19JAN12, 9FEB12
     Route: 042
     Dates: start: 20111208

REACTIONS (1)
  - EXTRAVASATION [None]
